FAERS Safety Report 15545688 (Version 1)
Quarter: 2018Q4

REPORT INFORMATION
  Report Type: Spontaneous
  Country: US (occurrence: US)
  Receive Date: 20181023
  Receipt Date: 20181023
  Transmission Date: 20190205
  Serious: Yes (Other)
  Sender: FDA-Public Use
  Company Number: None

PATIENT
  Age: 20 Year
  Sex: Female
  Weight: 58.5 kg

DRUGS (7)
  1. IMITREX [Concomitant]
     Active Substance: SUMATRIPTAN SUCCINATE
  2. MAGNESIUM [Concomitant]
     Active Substance: MAGNESIUM
  3. BIOTIN [Concomitant]
     Active Substance: BIOTIN
  4. AIMOVIG [Suspect]
     Active Substance: ERENUMAB-AOOE
     Indication: MIGRAINE
     Dosage: ?          QUANTITY:2 INJECTION(S);OTHER FREQUENCY:ONCE A MONTH;?
     Route: 058
  5. PROBIOTIC [Concomitant]
     Active Substance: PROBIOTICS NOS
  6. TROKENDI [Concomitant]
     Active Substance: TOPIRAMATE
  7. SELENIUM [Concomitant]
     Active Substance: SELENIUM

REACTIONS (3)
  - Therapy change [None]
  - Weight decreased [None]
  - Diarrhoea [None]

NARRATIVE: CASE EVENT DATE: 20180910
